FAERS Safety Report 23814391 (Version 1)
Quarter: 2024Q2

REPORT INFORMATION
  Report Type: Spontaneous
  Country: US (occurrence: None)
  Receive Date: 20240503
  Receipt Date: 20240503
  Transmission Date: 20240716
  Serious: Yes (Hospitalization)
  Sender: FDA-Public Use
  Company Number: US-ROCHE-3553649

PATIENT
  Sex: Male

DRUGS (3)
  1. HEMLIBRA [Suspect]
     Active Substance: EMICIZUMAB-KXWH
     Indication: Factor VIII deficiency
     Dosage: 150 MG/ML?HEMLIBRA DOSING AND FREQUENCY: INJECT 420 MG (2.8 ML) SUBCUTANEOUSLY EVERY 28 DAYS
     Route: 058
     Dates: start: 202207
  2. HEMLIBRA [Suspect]
     Active Substance: EMICIZUMAB-KXWH
     Dosage: 60 MG/0.4 ML?HEMLIBRA DOSING AND FREQUENCY: INJECT 420 MG (2.8 ML) SUBCUTANEOUSLY EVERY 28 DAYS
     Route: 058
     Dates: start: 202207
  3. DEPAKOTE [Concomitant]
     Active Substance: DIVALPROEX SODIUM

REACTIONS (1)
  - Drug level increased [Unknown]
